FAERS Safety Report 18262873 (Version 2)
Quarter: 2020Q3

REPORT INFORMATION
  Report Type: Spontaneous
  Country: US (occurrence: US)
  Receive Date: 20200914
  Receipt Date: 20200915
  Transmission Date: 20201103
  Serious: Yes (Other)
  Sender: FDA-Public Use
  Company Number: US-PFIZER INC-2020353123

PATIENT
  Age: 45 Year
  Sex: Male
  Weight: 171.46 kg

DRUGS (1)
  1. LYRICA [Suspect]
     Active Substance: PREGABALIN
     Indication: NEURALGIA
     Dosage: 200 MG, 3X/DAY
     Route: 048

REACTIONS (4)
  - Blindness unilateral [Unknown]
  - Lens disorder [Unknown]
  - Vision blurred [Unknown]
  - Weight increased [Unknown]

NARRATIVE: CASE EVENT DATE: 202002
